FAERS Safety Report 4554471-0 (Version None)
Quarter: 2005Q1

REPORT INFORMATION
  Report Type: 
  Country: None (occurrence: None)
  Receive Date: 20050114
  Receipt Date: 20040528
  Transmission Date: 20050727
  Serious: Yes (Other)
  Sender: FDA-Public Use
  Company Number: GXKR2004DE00581

PATIENT
  Age: 38 Year
  Sex: Female

DRUGS (9)
  1. FLUCONAZOLE [Suspect]
     Indication: PYREXIA
     Dosage: 400 MG, INTRAVENOUS
     Route: 042
     Dates: start: 20030115
  2. DESLORATADINE (DESLORATADINE) [Suspect]
     Indication: PRURITUS
     Dosage: 10 MG
     Dates: start: 20030108
  3. CLEMASTINE (CLEMASTINE) [Concomitant]
  4. ALLOPURINOL [Concomitant]
  5. RANITIDINE [Concomitant]
  6. LORAZEPAM [Concomitant]
  7. MEROPENEM (MEROPENEM) [Concomitant]
  8. FILGRASTIM (FILGRASTIM) [Concomitant]
  9. LEVOFLOXACIN [Concomitant]

REACTIONS (13)
  - ALANINE AMINOTRANSFERASE INCREASED [None]
  - ANGIOIMMUNOBLASTIC T-CELL LYMPHOMA [None]
  - ASPARTATE AMINOTRANSFERASE INCREASED [None]
  - BLOOD ALKALINE PHOSPHATASE INCREASED [None]
  - BLOOD LACTATE DEHYDROGENASE INCREASED [None]
  - CONDITION AGGRAVATED [None]
  - DRUG INTERACTION [None]
  - GAMMA-GLUTAMYLTRANSFERASE INCREASED [None]
  - HEPATOTOXICITY [None]
  - HYPERBILIRUBINAEMIA [None]
  - INTERNATIONAL NORMALISED RATIO INCREASED [None]
  - PRURITUS [None]
  - PYREXIA [None]
